FAERS Safety Report 6179536-1 (Version None)
Quarter: 2009Q2

REPORT INFORMATION
  Report Type: 
  Country: None (occurrence: None)
  Receive Date: 20090505
  Receipt Date: 20090427
  Transmission Date: 20091009
  Serious: Yes (Other)
  Sender: FDA-Public Use
  Company Number: US-AVENTIS-200912050US

PATIENT
  Sex: Female
  Weight: 81.65 kg

DRUGS (7)
  1. LANTUS [Suspect]
     Route: 058
     Dates: start: 20081101
  2. ATENOLOL [Concomitant]
     Indication: BLOOD PRESSURE
  3. LEVOTHYROXINE SODIUM [Concomitant]
     Indication: THYROID DISORDER
     Dosage: DOSE QUANTITY: 0.05
  4. VYTORIN [Concomitant]
     Dosage: DOSE: 1 TAB
     Dates: start: 20000101
  5. ASPIRIN [Concomitant]
  6. POTASSIUM CHLORIDE [Concomitant]
     Dosage: DOSE: 2 TAB
  7. LOTREL [Concomitant]
     Dosage: DOSE QUANTITY: 1

REACTIONS (5)
  - BLOOD GLUCOSE DECREASED [None]
  - BLOOD GLUCOSE INCREASED [None]
  - FEELING COLD [None]
  - TREMOR [None]
  - WEIGHT INCREASED [None]
